FAERS Safety Report 8206837-5 (Version None)
Quarter: 2012Q1

REPORT INFORMATION
  Report Type: 
  Country: None (occurrence: None)
  Receive Date: 20120312
  Receipt Date: 20120301
  Transmission Date: 20120608
  Serious: Yes (Hospitalization)
  Sender: FDA-Public Use
  Company Number: AUR-APL-2010-02998

PATIENT
  Age: 25 Year
  Sex: Female
  Weight: 60 kg

DRUGS (1)
  1. AMLODIPINE [Suspect]
     Indication: PRODUCT USED FOR UNKNOWN INDICATION
     Dosage: (40 DOSAGE FORMS),ORAL
     Route: 048

REACTIONS (7)
  - SINUS TACHYCARDIA [None]
  - DRUG INEFFECTIVE [None]
  - SHOCK [None]
  - OVERDOSE [None]
  - CONFUSIONAL STATE [None]
  - HYPOGLYCAEMIA [None]
  - LETHARGY [None]
